FAERS Safety Report 21985841 (Version 3)
Quarter: 2024Q2

REPORT INFORMATION
  Report Type: Spontaneous
  Country: US (occurrence: US)
  Receive Date: 20230213
  Receipt Date: 20240624
  Transmission Date: 20240716
  Serious: No
  Sender: FDA-Public Use
  Company Number: US-SA-SAC20230209000611

PATIENT
  Age: 9 Year
  Sex: Female

DRUGS (1)
  1. DUPIXENT [Suspect]
     Active Substance: DUPILUMAB
     Indication: Dermatitis atopic
     Dosage: 300 MG, Q4W
     Route: 058

REACTIONS (11)
  - Eye allergy [Recovered/Resolved]
  - Asthenia [Unknown]
  - Sneezing [Recovered/Resolved]
  - Rhinorrhoea [Recovered/Resolved]
  - Myalgia [Unknown]
  - Condition aggravated [Unknown]
  - Back pain [Unknown]
  - Pain in extremity [Unknown]
  - Rash erythematous [Unknown]
  - Rash [Unknown]
  - Rash [Recovered/Resolved]
